FAERS Safety Report 9144625 (Version 1)
Quarter: 2013Q1

REPORT INFORMATION
  Report Type: Spontaneous
  Country: US (occurrence: US)
  Receive Date: 20130306
  Receipt Date: 20130306
  Transmission Date: 20140127
  Serious: Yes (Hospitalization, Other)
  Sender: FDA-Public Use
  Company Number: US-ROCHE-1197496

PATIENT
  Sex: 0

DRUGS (2)
  1. RITUXAN [Suspect]
     Indication: CHRONIC LYMPHOCYTIC LEUKAEMIA
     Route: 042
  2. TREANDA [Concomitant]
     Indication: CHRONIC LYMPHOCYTIC LEUKAEMIA

REACTIONS (8)
  - Thrombosis [Unknown]
  - Cellulitis [Unknown]
  - Chest pain [Unknown]
  - Pruritus [Unknown]
  - Vasodilatation [Unknown]
  - Heart rate decreased [Unknown]
  - Hypotension [Unknown]
  - Asthenia [Unknown]
